FAERS Safety Report 22367409 (Version 1)
Quarter: 2023Q2

REPORT INFORMATION
  Report Type: Other
  Country: None (occurrence: US)
  Receive Date: 20230525
  Receipt Date: 20230525
  Transmission Date: 20230722
  Serious: Yes (Hospitalization)
  Sender: FDA-Public Use
  Company Number: US-Nephron Pharmaceuticals Corporation-2141990

PATIENT
  Age: 24 Month
  Sex: Male

DRUGS (3)
  1. KETOROLAC TROMETHAMINE [Suspect]
     Active Substance: KETOROLAC TROMETHAMINE
  2. ETHAMSYLATE [Concomitant]
     Active Substance: ETHAMSYLATE
  3. CEFTRIAXONE [Concomitant]
     Active Substance: CEFTRIAXONE

REACTIONS (1)
  - Haematuria [Recovered/Resolved]
